FAERS Safety Report 6335373-6 (Version None)
Quarter: 2009Q3

REPORT INFORMATION
  Report Type: 
  Country: None (occurrence: None)
  Receive Date: 20090827
  Receipt Date: 20090814
  Transmission Date: 20100115
  Serious: Yes (Disabling)
  Sender: FDA-Public Use
  Company Number: 2009AL005457

PATIENT
  Age: 49 Year
  Sex: Female

DRUGS (5)
  1. MIRTAZAPINE [Suspect]
     Indication: DEPRESSION
     Dosage: 30 MG;PO
     Route: 048
     Dates: start: 20090617, end: 20090626
  2. DIAZEPAM [Concomitant]
  3. CITALOPRAM HYDROBROMIDE [Concomitant]
  4. METRONIDAZOLE [Concomitant]
  5. CODEINE [Concomitant]

REACTIONS (7)
  - DISORIENTATION [None]
  - DYSPHAGIA [None]
  - HYPOAESTHESIA [None]
  - JOINT SWELLING [None]
  - MALAISE [None]
  - MOTOR DYSFUNCTION [None]
  - OEDEMA PERIPHERAL [None]
